FAERS Safety Report 20224557 (Version 3)
Quarter: 2022Q2

REPORT INFORMATION
  Report Type: Report from Study
  Country: FR (occurrence: FR)
  Receive Date: 20211223
  Receipt Date: 20220509
  Transmission Date: 20220720
  Serious: Yes (Hospitalization)
  Sender: FDA-Public Use
  Company Number: FR-002147023-NVSC2021FR149317

PATIENT
  Age: 56 Year
  Sex: Male
  Weight: 73 kg

DRUGS (9)
  1. METHOTREXATE [Suspect]
     Active Substance: METHOTREXATE
     Indication: Philadelphia chromosome positive
     Dosage: 15 MILLIGRAM
     Route: 037
     Dates: start: 20210319
  2. METHOTREXATE [Suspect]
     Active Substance: METHOTREXATE
     Dosage: 15 MILLIGRAM
     Route: 042
     Dates: start: 20210319
  3. METHOTREXATE [Suspect]
     Active Substance: METHOTREXATE
     Dosage: 1760 MILLIGRAM
     Route: 042
     Dates: start: 20210416, end: 20210611
  4. METHOTREXATE [Suspect]
     Active Substance: METHOTREXATE
     Dosage: 1790 MILLIGRAM, 1 HOUR/DAY D1
     Route: 042
     Dates: start: 20210611, end: 20210611
  5. METHOTREXATE [Suspect]
     Active Substance: METHOTREXATE
     Dosage: 15 MILLIGRAM, 1 HOUR/DAY D9
     Route: 037
     Dates: start: 20210619, end: 20210619
  6. CYTARABINE [Suspect]
     Active Substance: CYTARABINE
     Indication: Philadelphia chromosome positive
     Dosage: 5370 MILLIGRAM
     Route: 042
     Dates: start: 20210416, end: 20210613
  7. CYTARABINE [Suspect]
     Active Substance: CYTARABINE
     Dosage: 5370 MILLIGRAM, 1 HOUR/DAY D2 TO D3
     Route: 042
     Dates: start: 20210612, end: 20210613
  8. CYTARABINE [Suspect]
     Active Substance: CYTARABINE
     Dosage: 40 MILLIGRAM, 1 HOUR/DAY D9
     Route: 037
     Dates: start: 20210619, end: 20210619
  9. DEXAMETHASONE [Suspect]
     Active Substance: DEXAMETHASONE
     Indication: Philadelphia chromosome positive
     Dosage: 40 MILLIGRAM
     Route: 048
     Dates: start: 20210319, end: 20210604

REACTIONS (3)
  - Pneumocystis jirovecii pneumonia [Recovered/Resolved]
  - Epstein-Barr virus infection reactivation [Recovered/Resolved with Sequelae]
  - Hyperthermia [Recovered/Resolved with Sequelae]

NARRATIVE: CASE EVENT DATE: 20210617
